FAERS Safety Report 8602104-6 (Version None)
Quarter: 2012Q3

REPORT INFORMATION
  Report Type: 
  Country: None (occurrence: None)
  Receive Date: 20120817
  Receipt Date: 20120814
  Transmission Date: 20120928
  Serious: Yes (Other)
  Sender: FDA-Public Use
  Company Number: US-PFIZER INC-2012199540

PATIENT
  Sex: Female

DRUGS (2)
  1. PROCARDIA [Suspect]
  2. LATANOPROST [Suspect]

REACTIONS (1)
  - BLINDNESS [None]
